FAERS Safety Report 7575901-6 (Version None)
Quarter: 2011Q2

REPORT INFORMATION
  Report Type: 
  Country: None (occurrence: None)
  Receive Date: 20110628
  Receipt Date: 20110621
  Transmission Date: 20111010
  Serious: No
  Sender: FDA-Public Use
  Company Number: US-BIOGENIDEC-2011BI022792

PATIENT
  Age: 58 Year
  Sex: Female

DRUGS (2)
  1. DETROL [Concomitant]
     Indication: NOCTURIA
  2. TYSABRI [Suspect]
     Indication: MULTIPLE SCLEROSIS
     Route: 042
     Dates: start: 20071019

REACTIONS (10)
  - MUSCLE INJURY [None]
  - VOMITING [None]
  - FALL [None]
  - SKELETAL INJURY [None]
  - MIGRAINE [None]
  - BLISTER [None]
  - HYPOAESTHESIA [None]
  - LOSS OF CONTROL OF LEGS [None]
  - NOCTURIA [None]
  - LACERATION [None]
